FAERS Safety Report 5835325-6 (Version None)
Quarter: 2008Q3

REPORT INFORMATION
  Report Type: 
  Country: None (occurrence: None)
  Receive Date: 20080804
  Receipt Date: 20080725
  Transmission Date: 20090109
  Serious: Yes (Hospitalization)
  Sender: FDA-Public Use
  Company Number: CIP08001385

PATIENT
  Age: 56 Year
  Sex: Female

DRUGS (3)
  1. ACTONEL [Suspect]
     Indication: OSTEOPOROSIS POSTMENOPAUSAL
     Dosage: 75 MG TWO CONSECUTIVE DAYS MONTHLY, ORAL
     Route: 048
     Dates: start: 20080502, end: 20080503
  2. SYNTHROID [Concomitant]
  3. CALCIUM (CALCIUM) [Concomitant]

REACTIONS (2)
  - ARRHYTHMIA [None]
  - DYSPEPSIA [None]
